FAERS Safety Report 19462883 (Version 1)
Quarter: 2021Q2

REPORT INFORMATION
  Report Type: Spontaneous
  Country: US (occurrence: US)
  Receive Date: 20210625
  Receipt Date: 20210625
  Transmission Date: 20210717
  Serious: No
  Sender: FDA-Public Use
  Company Number: US-ASTRAZENECA-2021A500547

PATIENT
  Sex: Female

DRUGS (1)
  1. LYNPARZA [Suspect]
     Active Substance: OLAPARIB
     Dosage: 150.0MG UNKNOWN
     Route: 048
     Dates: start: 202105

REACTIONS (6)
  - Increased appetite [Unknown]
  - Arthralgia [Unknown]
  - Taste disorder [Unknown]
  - Nausea [Unknown]
  - Product physical issue [Unknown]
  - Oral herpes [Unknown]

NARRATIVE: CASE EVENT DATE: 2021
